FAERS Safety Report 14389672 (Version 1)
Quarter: 2018Q1

REPORT INFORMATION
  Report Type: Spontaneous
  Country: US (occurrence: US)
  Receive Date: 20180115
  Receipt Date: 20180115
  Transmission Date: 20180509
  Serious: Yes (Hospitalization, Other)
  Sender: FDA-Public Use
  Company Number: US-ABBVIE-18P-163-2217032-00

PATIENT
  Age: 29 Year
  Sex: Male

DRUGS (2)
  1. VALPROIC ACID. [Suspect]
     Active Substance: VALPROIC ACID
     Indication: AFFECTIVE DISORDER
     Route: 065
  2. ERTAPENEM. [Interacting]
     Active Substance: ERTAPENEM SODIUM
     Indication: TOXICITY TO VARIOUS AGENTS
     Route: 042

REACTIONS (7)
  - Hypocalcaemia [Recovered/Resolved]
  - Hyperammonaemia [Recovered/Resolved]
  - Hyperkalaemia [Recovered/Resolved]
  - Lactic acidosis [Recovered/Resolved]
  - Drug interaction [Recovered/Resolved]
  - Toxicity to various agents [Recovered/Resolved]
  - Hypernatraemia [Recovered/Resolved]
